FAERS Safety Report 13509657 (Version 2)
Quarter: 2017Q3

REPORT INFORMATION
  Report Type: Spontaneous
  Country: US (occurrence: US)
  Receive Date: 20170503
  Receipt Date: 20170803
  Transmission Date: 20171127
  Serious: No
  Sender: FDA-Public Use
  Company Number: US-SA-2017SA029033

PATIENT
  Age: 76 Year
  Sex: Female
  Weight: 95.25 kg

DRUGS (3)
  1. ALIROCUMAB PREFILLED PEN [Suspect]
     Active Substance: ALIROCUMAB
     Indication: HYPERLIPIDAEMIA
     Dates: start: 20170203, end: 20170405
  2. VICTOZA [Concomitant]
     Active Substance: LIRAGLUTIDE
  3. PRALUENT [Suspect]
     Active Substance: ALIROCUMAB
     Indication: HYPERLIPIDAEMIA
     Route: 058
     Dates: start: 20170203, end: 20170405

REACTIONS (4)
  - Underdose [Unknown]
  - Injection site bruising [Not Recovered/Not Resolved]
  - Device use issue [Unknown]
  - Drug ineffective [Unknown]

NARRATIVE: CASE EVENT DATE: 20170303
